FAERS Safety Report 5094362-2 (Version None)
Quarter: 2006Q3

REPORT INFORMATION
  Report Type: 
  Country: None (occurrence: None)
  Receive Date: 20060829
  Receipt Date: 20060821
  Transmission Date: 20061208
  Serious: Yes (Life-Threatening, Hospitalization, Disabling, Other)
  Sender: FDA-Public Use
  Company Number: GXKR2006GB05125

PATIENT
  Sex: Female
  Weight: 60 kg

DRUGS (4)
  1. ACETAMINOPHEN W/ CODEINE [Suspect]
     Dosage: QID, ORAL
     Route: 048
     Dates: start: 20060706, end: 20060710
  2. DOMPERIDONE [Concomitant]
  3. METOCLOPRAMIDE [Concomitant]
  4. THIAMINE [Concomitant]

REACTIONS (2)
  - HEPATIC FAILURE [None]
  - PROTHROMBIN TIME PROLONGED [None]
